FAERS Safety Report 6587537-4 (Version None)
Quarter: 2010Q1

REPORT INFORMATION
  Report Type: 
  Country: None (occurrence: None)
  Receive Date: 20100218
  Receipt Date: 20071218
  Transmission Date: 20100710
  Serious: Yes (Other)
  Sender: FDA-Public Use
  Company Number: US-ASTRAZENECA-2006UW19444

PATIENT
  Age: 46 Year
  Sex: Male
  Weight: 96.2 kg

DRUGS (16)
  1. SEROQUEL [Suspect]
     Indication: DEPRESSION
     Route: 048
     Dates: start: 20010101, end: 20040101
  2. SEROQUEL [Suspect]
     Indication: ANXIETY
     Route: 048
     Dates: start: 20010101, end: 20040101
  3. SEROQUEL [Suspect]
     Route: 048
  4. SEROQUEL [Suspect]
     Route: 048
  5. EFFEXOR XR [Concomitant]
     Indication: DEPRESSION
     Dates: start: 20020920
  6. VIOXX [Concomitant]
     Dates: start: 20020920
  7. PRILOSEC [Concomitant]
     Dates: start: 20030815
  8. TRAZODONE [Concomitant]
     Dates: start: 20030815
  9. AMBIEN [Concomitant]
     Dates: start: 20040127
  10. NABUMETONE [Concomitant]
     Dates: start: 20040127
  11. NORVASC [Concomitant]
     Dates: start: 20040127
  12. DIOVAN [Concomitant]
     Dates: start: 20040127
  13. LASIX [Concomitant]
     Dosage: 40MG -80MG
     Dates: start: 20040127
  14. LIPITOR [Concomitant]
     Dates: start: 20040217
  15. ZYPREXA [Concomitant]
  16. RISPERDAL [Concomitant]

REACTIONS (5)
  - DIABETES MELLITUS [None]
  - DIABETES MELLITUS INADEQUATE CONTROL [None]
  - DIABETIC NEUROPATHY [None]
  - TYPE 1 DIABETES MELLITUS [None]
  - TYPE 2 DIABETES MELLITUS [None]
